FAERS Safety Report 7743298-4 (Version None)
Quarter: 2011Q3

REPORT INFORMATION
  Report Type: 
  Country: None (occurrence: None)
  Receive Date: 20110909
  Receipt Date: 20110909
  Transmission Date: 20111222
  Serious: Yes (Hospitalization)
  Sender: FDA-Public Use
  Company Number: None

PATIENT
  Sex: Female
  Weight: 49.8957 kg

DRUGS (5)
  1. PREVPAC [Suspect]
     Indication: DYSPEPSIA
     Dosage: 1 PK TWICE DAILY
     Dates: start: 20110815, end: 20110819
  2. CIPROFLOXACIN [Suspect]
     Indication: URINARY TRACT INFECTION
     Dosage: 500MG 1 TAB TWICE DAILY
     Dates: start: 20110216
  3. BIAXIN [Suspect]
     Indication: DYSPEPSIA
     Dosage: 1 PK TWICE DAILY
     Dates: start: 20110815, end: 20110819
  4. PREVACID [Suspect]
     Indication: DYSPEPSIA
     Dosage: 1 PK TWICE DAILY
     Dates: start: 20110815, end: 20110819
  5. AMOXICILLIN [Suspect]
     Indication: DYSPEPSIA
     Dosage: 1 PK TWICE DAILY
     Dates: start: 20110815, end: 20110819

REACTIONS (2)
  - BLADDER IRRITATION [None]
  - NEUROPATHY PERIPHERAL [None]
